FAERS Safety Report 25320058 (Version 1)
Quarter: 2025Q2

REPORT INFORMATION
  Report Type: Spontaneous
  Country: DE (occurrence: DE)
  Receive Date: 20250515
  Receipt Date: 20250515
  Transmission Date: 20250716
  Serious: Yes (Hospitalization, Other)
  Sender: ORGANON
  Company Number: None

PATIENT
  Age: 70 Year
  Sex: Male
  Weight: 70 kg

DRUGS (10)
  1. SIMVASTATIN [Suspect]
     Active Substance: SIMVASTATIN
     Indication: Coronary artery disease
     Dosage: 40MG 0-0-1
     Route: 048
  2. DICLOFENAC [Suspect]
     Active Substance: DICLOFENAC
     Indication: Back pain
     Route: 048
     Dates: start: 20250316, end: 20250423
  3. DICLOFENAC [Suspect]
     Active Substance: DICLOFENAC
     Indication: Lumbar vertebral fracture
  4. IBUPROFEN [Suspect]
     Active Substance: IBUPROFEN
     Indication: Back pain
     Dosage: 1-1-1 (APPLICATION OF DIFFERENT DOSAGES IN THE SELF-MEDICATION400/600/800)
     Route: 048
     Dates: start: 20250316, end: 20250423
  5. IBUPROFEN [Suspect]
     Active Substance: IBUPROFEN
     Indication: Lumbar vertebral fracture
  6. RAMIPRIL [Suspect]
     Active Substance: RAMIPRIL
     Indication: Hypertension
     Dosage: 5MG 1-0-1
     Route: 048
  7. RAMIPRIL [Suspect]
     Active Substance: RAMIPRIL
     Indication: Coronary artery disease
  8. AMLODIPINE [Suspect]
     Active Substance: AMLODIPINE BESYLATE
     Indication: Hypertension
     Dosage: 10MG 1-0-0
     Route: 048
  9. CARVEDILOL [Suspect]
     Active Substance: CARVEDILOL
     Indication: Hypertension
     Dosage: 25MG 1-0-1
     Route: 048
  10. CARVEDILOL [Suspect]
     Active Substance: CARVEDILOL
     Indication: Coronary artery disease

REACTIONS (3)
  - Acute kidney injury [Recovering/Resolving]
  - Hyperkalaemia [Recovering/Resolving]
  - Dehydration [Recovering/Resolving]

NARRATIVE: CASE EVENT DATE: 20250423
